FAERS Safety Report 10785677 (Version 1)
Quarter: 2015Q1

REPORT INFORMATION
  Report Type: Spontaneous
  Country: US (occurrence: US)
  Receive Date: 20150211
  Receipt Date: 20150211
  Transmission Date: 20150721
  Serious: No
  Sender: FDA-Public Use
  Company Number: US-GLAXOSMITHKLINE-A1090596A

PATIENT

DRUGS (1)
  1. ABREVA [Suspect]
     Active Substance: DOCOSANOL
     Indication: HERPES VIRUS INFECTION
     Dates: start: 20140823, end: 20140826

REACTIONS (1)
  - Drug administration error [Recovered/Resolved]

NARRATIVE: CASE EVENT DATE: 20140823
